FAERS Safety Report 5579064-8 (Version None)
Quarter: 2008Q1

REPORT INFORMATION
  Report Type: 
  Country: None (occurrence: None)
  Receive Date: 20080102
  Receipt Date: 20071226
  Transmission Date: 20080703
  Serious: Yes (Hospitalization)
  Sender: FDA-Public Use
  Company Number: JP-JNJFOC-20071100569

PATIENT
  Sex: Male
  Weight: 77.4 kg

DRUGS (26)
  1. BLINDED; INFLIXIMAB, RECOMBINANT [Suspect]
     Route: 042
  2. BLINDED; INFLIXIMAB, RECOMBINANT [Suspect]
     Route: 042
  3. BLINDED; INFLIXIMAB, RECOMBINANT [Suspect]
     Route: 042
  4. BLINDED; INFLIXIMAB, RECOMBINANT [Suspect]
     Route: 042
  5. BLINDED; INFLIXIMAB, RECOMBINANT [Suspect]
     Indication: COLITIS ULCERATIVE
     Route: 042
  6. PLACEBO [Suspect]
     Route: 042
  7. PLACEBO [Suspect]
     Route: 042
  8. PLACEBO [Suspect]
     Route: 042
  9. PLACEBO [Suspect]
     Route: 042
  10. PLACEBO [Suspect]
     Indication: COLITIS ULCERATIVE
     Route: 042
  11. PREDONINE [Suspect]
     Route: 048
  12. PREDONINE [Suspect]
     Route: 048
  13. PREDONINE [Suspect]
     Route: 048
  14. PREDONINE [Suspect]
     Route: 048
  15. PREDONINE [Suspect]
     Route: 048
  16. PREDONINE [Suspect]
     Route: 048
  17. PREDONINE [Suspect]
     Route: 048
  18. PREDONINE [Suspect]
     Route: 048
  19. PREDONINE [Suspect]
     Indication: COLITIS ULCERATIVE
     Route: 048
  20. FUTHAN [Concomitant]
     Indication: APHERESIS
     Route: 050
  21. IMURAN [Concomitant]
     Indication: COLITIS ULCERATIVE
     Route: 048
  22. BIO THREE [Concomitant]
     Indication: COLITIS ULCERATIVE
     Dosage: PRIOR TO 19-JAN-2007
     Route: 048
  23. FERROMIA [Concomitant]
     Indication: ANAEMIA
     Dosage: PRIOR TO 19-JAN-2007
     Route: 048
  24. LOXONIN [Concomitant]
     Indication: BACK PAIN
     Route: 061
  25. LIDOCAINE [Concomitant]
     Route: 061
  26. 5% GLUCOSE [Concomitant]
     Indication: APHERESIS
     Route: 050

REACTIONS (5)
  - COLITIS ULCERATIVE [None]
  - CYTOMEGALOVIRUS TEST POSITIVE [None]
  - OSTEOPOROSIS [None]
  - RIB FRACTURE [None]
  - SPINAL COMPRESSION FRACTURE [None]
